FAERS Safety Report 5611592-9 (Version None)
Quarter: 2008Q1

REPORT INFORMATION
  Report Type: 
  Country: None (occurrence: None)
  Receive Date: 20080201
  Receipt Date: 20080122
  Transmission Date: 20080703
  Serious: Yes (Other)
  Sender: FDA-Public Use
  Company Number: JP-PFIZER INC-2008007136

PATIENT
  Sex: Male

DRUGS (3)
  1. HALCION [Suspect]
     Indication: INSOMNIA
     Route: 048
  2. SOLANAX [Suspect]
     Indication: ANXIETY
     Route: 048
  3. TRIAZOLAM [Suspect]
     Indication: INSOMNIA
     Route: 048

REACTIONS (2)
  - HOMICIDE [None]
  - PHYSICAL ASSAULT [None]
